FAERS Safety Report 23895368 (Version 1)
Quarter: 2024Q2

REPORT INFORMATION
  Report Type: Spontaneous
  Country: US (occurrence: None)
  Receive Date: 20240523
  Receipt Date: 20240523
  Transmission Date: 20240716
  Serious: Yes (Hospitalization)
  Sender: FDA-Public Use
  Company Number: None

PATIENT
  Age: 75 Year
  Sex: Male

DRUGS (1)
  1. CEPHALEXIN [Suspect]
     Active Substance: CEPHALEXIN
     Dates: start: 20231006, end: 20231006

REACTIONS (3)
  - Diarrhoea [None]
  - Vomiting [None]
  - Urinary tract infection [None]

NARRATIVE: CASE EVENT DATE: 20231006
